FAERS Safety Report 7424487-5 (Version None)
Quarter: 2011Q2

REPORT INFORMATION
  Report Type: 
  Country: None (occurrence: None)
  Receive Date: 20110419
  Receipt Date: 20110412
  Transmission Date: 20111010
  Serious: Yes (Other)
  Sender: FDA-Public Use
  Company Number: US-SANOFI-AVENTIS-2011SA007975

PATIENT
  Age: 59 Year
  Sex: Female
  Weight: 90 kg

DRUGS (1)
  1. LANTUS [Suspect]
     Indication: TYPE 2 DIABETES MELLITUS
     Dosage: 32 UNITS IN THE MORNING AND 22 UNITS EVERY EVENING
     Route: 058
     Dates: end: 20110210

REACTIONS (2)
  - BLINDNESS [None]
  - VISUAL IMPAIRMENT [None]
